FAERS Safety Report 20742314 (Version 1)
Quarter: 2022Q2

REPORT INFORMATION
  Report Type: Spontaneous
  Country: US (occurrence: US)
  Receive Date: 20220424
  Receipt Date: 20220424
  Transmission Date: 20220721
  Serious: No
  Sender: FDA-Public Use
  Company Number: US-TEVA-2022-US-2022175

PATIENT
  Sex: Female

DRUGS (9)
  1. PENICILLIN [Suspect]
     Active Substance: PENICILLIN
     Route: 065
  2. UNSPECIFIED INGREDIENT [Suspect]
     Active Substance: UNSPECIFIED INGREDIENT
     Route: 065
  3. LATUDA [Suspect]
     Active Substance: LURASIDONE HYDROCHLORIDE
     Route: 065
  4. LAMICTAL [Suspect]
     Active Substance: LAMOTRIGINE
     Route: 065
  5. VRAYLAR [Concomitant]
     Active Substance: CARIPRAZINE
  6. WELLBUTRIN [Concomitant]
     Active Substance: BUPROPION HYDROCHLORIDE
     Route: 065
  7. KLONOPIN [Concomitant]
     Active Substance: CLONAZEPAM
     Route: 065
  8. AUSTEDO [Concomitant]
     Active Substance: DEUTETRABENAZINE
     Indication: Tardive dyskinesia
     Dosage: 6MG + 9MG TWICE DAILY
     Route: 065
  9. AUSTEDO [Concomitant]
     Active Substance: DEUTETRABENAZINE
     Dosage: 6MG + 9MG TWICE DAILY
     Route: 065

REACTIONS (1)
  - Drug hypersensitivity [Unknown]
